FAERS Safety Report 25974912 (Version 2)
Quarter: 2025Q4

REPORT INFORMATION
  Report Type: Spontaneous
  Country: JP (occurrence: JP)
  Receive Date: 20251029
  Receipt Date: 20251031
  Transmission Date: 20260117
  Serious: Yes (Death, Hospitalization, Other)
  Sender: PFIZER
  Company Number: JP-PFIZER INC-PV202500126286

PATIENT
  Age: 65 Year
  Sex: Male

DRUGS (8)
  1. RITUXIMAB [Suspect]
     Active Substance: RITUXIMAB
     Indication: ABO incompatibility
     Dosage: 375 MG/M2 2 WEEKS PRIOR TO LDLT)
     Route: 042
  2. RITUXIMAB [Suspect]
     Active Substance: RITUXIMAB
     Indication: Liver transplant
  3. MYCOPHENOLATE MOFETIL [Concomitant]
     Active Substance: MYCOPHENOLATE MOFETIL
     Indication: ABO incompatibility
     Dosage: 1000 MG/DAY (1 WEEK BEFORE LDLT)
  4. MYCOPHENOLATE MOFETIL [Concomitant]
     Active Substance: MYCOPHENOLATE MOFETIL
     Indication: Liver transplant
  5. TACROLIMUS [Concomitant]
     Active Substance: TACROLIMUS
     Indication: ABO incompatibility
     Dosage: 1-2 MG/DAY (STARTED 1 WEEK BEFORE LDLT)
     Route: 042
  6. TACROLIMUS [Concomitant]
     Active Substance: TACROLIMUS
     Indication: Liver transplant
  7. METHYLPREDNISOLONE [Concomitant]
     Active Substance: METHYLPREDNISOLONE
     Indication: ABO incompatibility
     Dosage: 125 MG, 1X/DAY
  8. METHYLPREDNISOLONE [Concomitant]
     Active Substance: METHYLPREDNISOLONE
     Indication: Liver transplant

REACTIONS (4)
  - Transplant rejection [Fatal]
  - Transplant dysfunction [Fatal]
  - Venoocclusive liver disease [Fatal]
  - Off label use [Unknown]
